FAERS Safety Report 20944985 (Version 1)
Quarter: 2022Q2

REPORT INFORMATION
  Report Type: Spontaneous
  Country: FR (occurrence: FR)
  Receive Date: 20220610
  Receipt Date: 20220610
  Transmission Date: 20220721
  Serious: Yes (Hospitalization)
  Sender: FDA-Public Use
  Company Number: None

PATIENT
  Age: 58 Year
  Sex: Male
  Weight: 78 kg

DRUGS (6)
  1. DEPO-MEDROL [Suspect]
     Active Substance: METHYLPREDNISOLONE ACETATE
     Indication: Acute myeloid leukaemia
     Dosage: 40 MG, DAILY
     Route: 024
     Dates: start: 20220125, end: 20220125
  2. CYTARABINE [Suspect]
     Active Substance: CYTARABINE
     Indication: Acute myeloid leukaemia
     Dosage: 3 DF, CYCLIC, (1/DAY ON DAY1, DAY3, DAY8)
     Route: 042
     Dates: start: 20220121, end: 20220128
  3. CYTARABINE [Suspect]
     Active Substance: CYTARABINE
     Dosage: 40 MG, DAILY
     Route: 024
     Dates: start: 20220125, end: 20220125
  4. METHOTREXATE [Suspect]
     Active Substance: METHOTREXATE
     Indication: Acute myeloid leukaemia
     Dosage: 15 MG, 1X/DAY
     Route: 024
     Dates: start: 20220125, end: 20220125
  5. MITOXANTRONE HYDROCHLORIDE [Suspect]
     Active Substance: MITOXANTRONE HYDROCHLORIDE
     Indication: Acute myeloid leukaemia
     Dosage: 1 DF, 1X/DAY
     Route: 042
     Dates: start: 20220121, end: 20220123
  6. ETOPOSIDE [Suspect]
     Active Substance: ETOPOSIDE
     Indication: Acute myeloid leukaemia
     Dosage: 1 DF, 1X/DAY
     Route: 042
     Dates: start: 20220128, end: 20220128

REACTIONS (3)
  - Septic shock [Not Recovered/Not Resolved]
  - Aplasia [Not Recovered/Not Resolved]
  - Off label use [Unknown]

NARRATIVE: CASE EVENT DATE: 20220129
